FAERS Safety Report 16795830 (Version 2)
Quarter: 2019Q4

REPORT INFORMATION
  Report Type: Spontaneous
  Country: US (occurrence: US)
  Receive Date: 20190911
  Receipt Date: 20191023
  Transmission Date: 20200122
  Serious: No
  Sender: FDA-Public Use
  Company Number: US-PFIZER INC-2019390982

PATIENT
  Age: 60 Year
  Sex: Female
  Weight: 62.59 kg

DRUGS (4)
  1. DIOVAN HCT [Concomitant]
     Active Substance: HYDROCHLOROTHIAZIDE\VALSARTAN
     Indication: HYPERTENSION
     Dosage: UNK, DAILY (TAB DAILY)
     Dates: start: 201006
  2. IBRANCE [Suspect]
     Active Substance: PALBOCICLIB
     Indication: BREAST CANCER METASTATIC
     Dosage: 125 MG, CYCLIC (21 DAYS ON 7 DAYS OFF)
     Dates: start: 201711
  3. FASLODEX [Concomitant]
     Active Substance: FULVESTRANT
     Indication: BREAST CANCER METASTATIC
     Dosage: UNK UNK, MONTHLY (250MG/5ML MONTHLY INJECTIONS)
     Dates: start: 201711
  4. XGEVA [Concomitant]
     Active Substance: DENOSUMAB
     Indication: BREAST CANCER METASTATIC
     Dosage: UNK, MONTHLY
     Dates: start: 201711

REACTIONS (2)
  - Neoplasm progression [Unknown]
  - Fatigue [Not Recovered/Not Resolved]
